FAERS Safety Report 4710037-0 (Version None)
Quarter: 2005Q3

REPORT INFORMATION
  Report Type: 
  Country: None (occurrence: None)
  Receive Date: 20050708
  Receipt Date: 20050629
  Transmission Date: 20060218
  Serious: Yes (Other)
  Sender: FDA-Public Use
  Company Number: GB-ABBOTT-05P-167-0304617-00

PATIENT
  Sex: Female

DRUGS (3)
  1. EPILIM LIQUID [Suspect]
     Indication: EPILEPSY
     Route: 048
     Dates: start: 19800101, end: 20040201
  2. EPILIM LIQUID [Suspect]
     Dates: start: 20040201, end: 20040401
  3. TOPIRAMATE [Concomitant]
     Indication: DRUG USE FOR UNKNOWN INDICATION
     Dates: start: 20031101

REACTIONS (2)
  - CATARACT [None]
  - HAEMORRHAGIC DISORDER [None]
